FAERS Safety Report 6251167-4 (Version None)
Quarter: 2009Q2

REPORT INFORMATION
  Report Type: 
  Country: None (occurrence: None)
  Receive Date: 20090630
  Receipt Date: 20090513
  Transmission Date: 20091009
  Serious: No
  Sender: FDA-Public Use
  Company Number: US-ABBOTT-09P-163-0573155-00

PATIENT
  Sex: Female

DRUGS (5)
  1. ZEMPLAR [Suspect]
     Indication: HYPERPARATHYROIDISM
     Dates: start: 20090215
  2. AMLODIPINE [Concomitant]
     Indication: DRUG USE FOR UNKNOWN INDICATION
  3. CHLORTHORADINE [Concomitant]
     Indication: DRUG USE FOR UNKNOWN INDICATION
  4. VITAMIN B COMPLEX WITH C [Concomitant]
     Indication: DRUG USE FOR UNKNOWN INDICATION
  5. PHOSPHOCAL [Concomitant]
     Indication: DRUG USE FOR UNKNOWN INDICATION

REACTIONS (5)
  - ABDOMINAL PAIN LOWER [None]
  - AGEUSIA [None]
  - ASTHENIA [None]
  - DIZZINESS [None]
  - VOMITING [None]
